FAERS Safety Report 4805945-6 (Version None)
Quarter: 2005Q4

REPORT INFORMATION
  Report Type: 
  Country: None (occurrence: None)
  Receive Date: 20051021
  Receipt Date: 20050909
  Transmission Date: 20060501
  Serious: Yes (Death, Hospitalization)
  Sender: FDA-Public Use
  Company Number: 2005PK01666

PATIENT
  Age: 85 Year
  Sex: Female

DRUGS (3)
  1. ATACAND [Suspect]
     Indication: HYPERTENSION
     Route: 048
     Dates: start: 20030101
  2. ASPIRIN [Concomitant]
  3. VERAPAMIL [Concomitant]

REACTIONS (6)
  - ANAEMIA [None]
  - DEEP VEIN THROMBOSIS [None]
  - DIVERTICULAR PERFORATION [None]
  - DIVERTICULUM [None]
  - PULMONARY EMBOLISM [None]
  - RENAL FAILURE [None]
